FAERS Safety Report 5851178-4 (Version None)
Quarter: 2008Q3

REPORT INFORMATION
  Report Type: 
  Country: None (occurrence: None)
  Receive Date: 20080820
  Receipt Date: 20080728
  Transmission Date: 20090109
  Serious: Yes (Other)
  Sender: FDA-Public Use
  Company Number: NL-ASTRAZENECA-2008AC02190

PATIENT
  Age: 55 Year
  Sex: Female
  Weight: 110 kg

DRUGS (3)
  1. ZOMIG [Suspect]
     Indication: MIGRAINE
     Dosage: 1 TO 2 TIMES A DAY
     Route: 048
     Dates: start: 20080723, end: 20080724
  2. PROPRANOLOL [Suspect]
     Indication: PALPITATIONS
     Route: 048
     Dates: start: 20080115
  3. EFFEXOR XR [Suspect]
     Indication: DEPRESSION
     Route: 048
     Dates: start: 20050101

REACTIONS (5)
  - DISTURBANCE IN ATTENTION [None]
  - DYSARTHRIA [None]
  - FATIGUE [None]
  - NIGHTMARE [None]
  - SOMNOLENCE [None]
